FAERS Safety Report 4559550-X (Version None)
Quarter: 2005Q1

REPORT INFORMATION
  Report Type: 
  Country: None (occurrence: None)
  Receive Date: 20050124
  Receipt Date: 20050120
  Transmission Date: 20050727
  Serious: Yes (Life-Threatening)
  Sender: FDA-Public Use
  Company Number: FR-GLAXOSMITHKLINE-B0365145A

PATIENT
  Age: 35 Year
  Sex: Female

DRUGS (1)
  1. CLAMOXYL [Suspect]
     Indication: PREMATURE RUPTURE OF MEMBRANES
     Dosage: 1G SINGLE DOSE
     Route: 048
     Dates: start: 20050110, end: 20050110

REACTIONS (7)
  - ANAPHYLACTIC SHOCK [None]
  - BRONCHOSPASM [None]
  - CAESAREAN SECTION [None]
  - DRUG EXPOSURE DURING PREGNANCY [None]
  - ERYTHEMA [None]
  - HYPERTENSION [None]
  - TACHYCARDIA [None]
